FAERS Safety Report 11289678 (Version 2)
Quarter: 2015Q3

REPORT INFORMATION
  Report Type: Spontaneous
  Country: DE (occurrence: DE)
  Receive Date: 20150721
  Receipt Date: 20150925
  Transmission Date: 20151125
  Serious: Yes (Death, Hospitalization, Other)
  Sender: FDA-Public Use
  Company Number: DE-JNJFOC-20150714367

PATIENT
  Age: 77 Year
  Sex: Female
  Weight: 100 kg

DRUGS (8)
  1. PANTOPRAZOLE [Concomitant]
     Active Substance: PANTOPRAZOLE SODIUM
     Route: 065
  2. NEBIVOLOL. [Concomitant]
     Active Substance: NEBIVOLOL
     Route: 065
  3. EUTHYROX [Concomitant]
     Active Substance: LEVOTHYROXINE SODIUM
     Route: 065
  4. SIMVASTATIN. [Concomitant]
     Active Substance: SIMVASTATIN
     Route: 065
  5. PREDNISOLON [Concomitant]
     Active Substance: PREDNISOLONE
     Route: 065
  6. XARELTO [Suspect]
     Active Substance: RIVAROXABAN
     Indication: TACHYARRHYTHMIA
     Route: 048
     Dates: start: 20141213, end: 20141218
  7. RAMIPRIL. [Concomitant]
     Active Substance: RAMIPRIL
     Route: 065
  8. GINKGO BILOBA EXTRACT [Concomitant]
     Active Substance: GINKGO
     Route: 065

REACTIONS (10)
  - Lactic acidosis [Fatal]
  - Arterial occlusive disease [Unknown]
  - Dyspnoea [Unknown]
  - Somnolence [Unknown]
  - Septic shock [Fatal]
  - Mesenteric arterial occlusion [Unknown]
  - Thrombosis [Fatal]
  - Respiratory failure [Fatal]
  - Haemorrhagic infarction [Fatal]
  - Multi-organ failure [Fatal]

NARRATIVE: CASE EVENT DATE: 20141218
